FAERS Safety Report 4746346-9 (Version None)
Quarter: 2005Q3

REPORT INFORMATION
  Report Type: 
  Country: None (occurrence: None)
  Receive Date: 20050815
  Receipt Date: 20050530
  Transmission Date: 20060218
  Serious: Yes (Hospitalization)
  Sender: FDA-Public Use
  Company Number: 2005077960

PATIENT
  Age: 45 Year
  Sex: Male

DRUGS (4)
  1. BEXTRA [Suspect]
     Indication: RENAL COLIC
     Dosage: ORAL
     Route: 048
     Dates: start: 20050101, end: 20050323
  2. BEXTRA [Suspect]
     Indication: RENAL COLIC
     Dates: start: 20050301
  3. TENOXICAM (TENOXICAM) [Concomitant]
  4. ALL OTHER THERAPEUTIC PRODUCTS (ALL OTHER THERAPEUTIC PRODUCTS) [Concomitant]

REACTIONS (1)
  - HYPERSENSITIVITY [None]
